FAERS Safety Report 4931469-1 (Version None)
Quarter: 2006Q1

REPORT INFORMATION
  Report Type: 
  Country: None (occurrence: None)
  Receive Date: 20060303
  Receipt Date: 20060221
  Transmission Date: 20060701
  Serious: Yes (Other)
  Sender: FDA-Public Use
  Company Number: 2006UW03353

PATIENT
  Age: 64 Year
  Sex: Female
  Weight: 80.9 kg

DRUGS (2)
  1. TAMOXIFEN CITRATE [Suspect]
     Indication: BREAST CANCER STAGE I
     Route: 048
  2. ASPIRIN [Concomitant]

REACTIONS (3)
  - CORONARY ARTERY DISEASE [None]
  - PULMONARY EMBOLISM [None]
  - THROMBOSIS [None]
